FAERS Safety Report 6238221-8 (Version None)
Quarter: 2009Q2

REPORT INFORMATION
  Report Type: 
  Country: None (occurrence: None)
  Receive Date: 20090622
  Receipt Date: 20090610
  Transmission Date: 20091009
  Serious: Yes (Other)
  Sender: FDA-Public Use
  Company Number: IT-JNJFOC-20090602525

PATIENT
  Age: 28 Year
  Sex: Female

DRUGS (1)
  1. RISPERIDONE [Suspect]
     Indication: SCHIZOPHRENIA
     Route: 048

REACTIONS (10)
  - ACNE [None]
  - AMENORRHOEA [None]
  - BLOOD OESTROGEN DECREASED [None]
  - BONE DENSITY DECREASED [None]
  - BREAST DISCOMFORT [None]
  - GALACTORRHOEA [None]
  - HYPERPROLACTINAEMIA [None]
  - MENSTRUAL DISORDER [None]
  - OLIGOMENORRHOEA [None]
  - WEIGHT INCREASED [None]
